FAERS Safety Report 6624760-4 (Version None)
Quarter: 2010Q1

REPORT INFORMATION
  Report Type: 
  Country: None (occurrence: None)
  Receive Date: 20100223
  Receipt Date: 20091118
  Transmission Date: 20100710
  Serious: Yes (Other)
  Sender: FDA-Public Use
  Company Number: 8054971

PATIENT
  Sex: Female
  Weight: 73.5 kg

DRUGS (8)
  1. CERTOLIZUMAB PEGOL (UCB, INC) [Suspect]
     Indication: CROHN'S DISEASE
     Dosage: SUBCUTANEOUS
     Route: 058
     Dates: start: 20091117
  2. CLODINE [Concomitant]
  3. DIOVAN [Concomitant]
  4. PREDNISONE [Concomitant]
  5. ACTOS [Concomitant]
  6. XOLAIR [Concomitant]
  7. ADVAIR DISKUS 100/50 [Concomitant]
  8. ALBUTEROL SULFATE [Concomitant]

REACTIONS (1)
  - FATIGUE [None]
